FAERS Safety Report 6157192-6 (Version None)
Quarter: 2009Q2

REPORT INFORMATION
  Report Type: 
  Country: None (occurrence: None)
  Receive Date: 20090413
  Receipt Date: 20090409
  Transmission Date: 20091009
  Serious: Yes (Death, Hospitalization)
  Sender: FDA-Public Use
  Company Number: 2009SP007360

PATIENT
  Age: 53 Year
  Sex: Female

DRUGS (1)
  1. TEMODAL [Suspect]
     Indication: CARCINOID TUMOUR
     Dosage: 200 MG; QD; PO
     Route: 048

REACTIONS (1)
  - DEATH [None]
